FAERS Safety Report 8157586 (Version 3)
Quarter: 2013Q3

REPORT INFORMATION
  Report Type: Spontaneous
  Country: US (occurrence: US)
  Receive Date: 20110927
  Receipt Date: 20130823
  Transmission Date: 20140515
  Serious: No
  Sender: FDA-Public Use
  Company Number: US-ASTRAZENECA-2011SE15186

PATIENT
  Age: 32 Year
  Sex: Male

DRUGS (2)
  1. SEROQUEL XR [Suspect]
     Route: 048
  2. SEROQUEL XR [Suspect]
     Route: 048
     Dates: start: 2003, end: 201307

REACTIONS (5)
  - Insomnia [Unknown]
  - Impaired work ability [Unknown]
  - Hand fracture [Unknown]
  - Anxiety disorder [Unknown]
  - Drug dose omission [Unknown]
